FAERS Safety Report 4356957-0 (Version None)
Quarter: 2004Q2

REPORT INFORMATION
  Report Type: 
  Country: None (occurrence: None)
  Receive Date: 20040507
  Receipt Date: 20040427
  Transmission Date: 20050107
  Serious: Yes (Other)
  Sender: FDA-Public Use
  Company Number: DE-JNJFOC-20040406099

PATIENT
  Sex: Female

DRUGS (1)
  1. CILEST (NORGESTIMATE/ETHINYL ESTRADIOL) TABLETS [Suspect]
     Indication: CONTRACEPTION
     Dosage: ORAL

REACTIONS (1)
  - WITHDRAWAL BLEED [None]
